FAERS Safety Report 7190317-2 (Version None)
Quarter: 2010Q4

REPORT INFORMATION
  Report Type: 
  Country: None (occurrence: None)
  Receive Date: 20101223
  Receipt Date: 20101214
  Transmission Date: 20110411
  Serious: Yes (Other)
  Sender: FDA-Public Use
  Company Number: ES-EISAI INC.-E2090-01432-SPO-ES

PATIENT
  Age: 65 Year
  Sex: Female
  Weight: 67 kg

DRUGS (1)
  1. ZONEGRAN [Suspect]
     Indication: PARKINSON'S DISEASE
     Route: 048
     Dates: start: 20100501, end: 20100712

REACTIONS (5)
  - ABDOMINAL PAIN UPPER [None]
  - BLISTER [None]
  - HAEMATOMA [None]
  - HEADACHE [None]
  - PHARYNGEAL OEDEMA [None]
